FAERS Safety Report 5413270-8 (Version None)
Quarter: 2007Q3

REPORT INFORMATION
  Report Type: 
  Country: None (occurrence: None)
  Receive Date: 20070810
  Receipt Date: 20070730
  Transmission Date: 20080115
  Serious: Yes (Hospitalization, Other)
  Sender: FDA-Public Use
  Company Number: 17022

PATIENT
  Age: 40 Year
  Sex: Male

DRUGS (12)
  1. BLEOMYCIN [Suspect]
     Indication: HODGKIN'S DISEASE STAGE IV
  2. ETOPOSIDE [Suspect]
     Indication: HODGKIN'S DISEASE STAGE IV
  3. VINCRISTINE [Suspect]
     Indication: HODGKIN'S DISEASE STAGE IV
  4. CISPLATIN [Suspect]
     Indication: HODGKIN'S DISEASE STAGE IV
  5. CYTARABINE [Suspect]
     Indication: HODGKIN'S DISEASE STAGE IV
  6. CYTARABINE [Suspect]
     Indication: HODGKIN'S DISEASE STAGE IV
     Dosage: 36 MG IT
     Route: 038
  7. ADRIAMYCIN PFS [Suspect]
     Indication: HODGKIN'S DISEASE STAGE IV
  8. CYCLOPHOSPHAMIDE [Suspect]
     Indication: HODGKIN'S DISEASE STAGE IV
  9. PROCARBAZINE HYDROCHLORIDE [Suspect]
     Indication: HODGKIN'S DISEASE STAGE IV
  10. PREDNISONE TAB [Suspect]
     Indication: HODGKIN'S DISEASE STAGE IV
  11. METHOTREXATE [Concomitant]
  12. DEXAMETHASONE 0.5MG TAB [Concomitant]

REACTIONS (7)
  - BONE MARROW TUMOUR CELL INFILTRATION [None]
  - FEBRILE NEUTROPENIA [None]
  - HODGKIN'S DISEASE MIXED CELLULARITY RECURRENT [None]
  - HODGKIN'S DISEASE MIXED CELLULARITY STAGE IV [None]
  - LEUKOENCEPHALOPATHY [None]
  - MALIGNANT NEOPLASM PROGRESSION [None]
  - METASTASIS [None]
